FAERS Safety Report 5623596-0 (Version None)
Quarter: 2008Q1

REPORT INFORMATION
  Report Type: 
  Country: None (occurrence: None)
  Receive Date: 20080212
  Receipt Date: 20080206
  Transmission Date: 20080703
  Serious: Yes (Hospitalization)
  Sender: FDA-Public Use
  Company Number: US-BOEHRINGER INGELHEIM GMBH, GERMANY-2008-BP-01892BP

PATIENT
  Sex: Male

DRUGS (1)
  1. MICARDIS HCT [Suspect]

REACTIONS (2)
  - CARDIAC FAILURE CONGESTIVE [None]
  - CHEST PAIN [None]
